FAERS Safety Report 23769995 (Version 1)
Quarter: 2024Q2

REPORT INFORMATION
  Report Type: Spontaneous
  Country: US (occurrence: US)
  Receive Date: 20240422
  Receipt Date: 20240422
  Transmission Date: 20240715
  Serious: Yes (Life-Threatening, Hospitalization)
  Sender: FDA-Public Use
  Company Number: US-SK LIFE SCIENCE, INC.-SKPVG-2024-000742

PATIENT

DRUGS (5)
  1. XCOPRI [Suspect]
     Active Substance: CENOBAMATE
     Indication: Seizure
     Dosage: UNK
     Route: 048
     Dates: start: 2023
  2. XCOPRI [Suspect]
     Active Substance: CENOBAMATE
     Dosage: 100 MILLIGRAM, TWICE DAILY
     Route: 048
  3. XCOPRI [Suspect]
     Active Substance: CENOBAMATE
     Dosage: 150 MILLIGRAM, TWICE DAILY
     Route: 048
     Dates: start: 202402, end: 20240415
  4. LAMOTRIGINE [Concomitant]
     Active Substance: LAMOTRIGINE
     Indication: Product used for unknown indication
     Dosage: UNK, REGULARLY
     Route: 065
  5. MIDAZOLAM [Concomitant]
     Active Substance: MIDAZOLAM
     Indication: Seizure prophylaxis
     Dosage: NOSE SPRAY STUFF, PRN
     Route: 045

REACTIONS (1)
  - Seizure [Recovered/Resolved]

NARRATIVE: CASE EVENT DATE: 20240201
